FAERS Safety Report 5125112-9 (Version None)
Quarter: 2006Q4

REPORT INFORMATION
  Report Type: 
  Country: None (occurrence: None)
  Receive Date: 20061010
  Receipt Date: 20061010
  Transmission Date: 20070319
  Serious: Yes (Other)
  Sender: FDA-Public Use
  Company Number: None

PATIENT
  Sex: Male
  Weight: 127.9144 kg

DRUGS (3)
  1. AMPICILLIN/ SULBACTAM 3 GRAMS APP [Suspect]
     Indication: AORTIC VALVE DISEASE
     Dosage: 3 GRAMS Q6H IV
     Route: 042
     Dates: start: 20060926, end: 20061006
  2. AMPICILLIN/ SULBACTAM 3 GRAMS APP [Suspect]
     Indication: INFECTION
     Dosage: 3 GRAMS Q6H IV
     Route: 042
     Dates: start: 20060926, end: 20061006
  3. GENTAMICIN [Concomitant]

REACTIONS (1)
  - RASH [None]
